FAERS Safety Report 7434976-5 (Version None)
Quarter: 2011Q2

REPORT INFORMATION
  Report Type: 
  Country: None (occurrence: None)
  Receive Date: 20110425
  Receipt Date: 20110412
  Transmission Date: 20111010
  Serious: Yes (Life-Threatening, Hospitalization)
  Sender: FDA-Public Use
  Company Number: IT-ELI_LILLY_AND_COMPANY-EWC020229915

PATIENT
  Age: 75 Year
  Sex: Male

DRUGS (3)
  1. CISPLATIN [Concomitant]
     Indication: BLADDER CANCER
     Dosage: UNK, UNKNOWN
     Route: 042
     Dates: start: 20011112, end: 20011203
  2. RADIOTHERAPY [Concomitant]
     Indication: RADIOTHERAPY
     Dosage: UNK, UNKNOWN
     Dates: start: 20011112, end: 20011121
  3. GEMZAR [Suspect]
     Indication: BLADDER CANCER
     Dosage: 500 MG/M2, WEEKLY (1/W)
     Route: 042
     Dates: start: 20011112, end: 20011217

REACTIONS (2)
  - SMALL INTESTINAL PERFORATION [None]
  - PERITONITIS [None]
